FAERS Safety Report 13543108 (Version 1)
Quarter: 2017Q2

REPORT INFORMATION
  Report Type: Spontaneous
  Country: US (occurrence: US)
  Receive Date: 20170512
  Receipt Date: 20170512
  Transmission Date: 20170830
  Serious: Yes (Hospitalization)
  Sender: FDA-Public Use
  Company Number: None

PATIENT
  Age: 64 Year
  Sex: Female

DRUGS (15)
  1. UPTRAVI [Concomitant]
     Active Substance: SELEXIPAG
  2. COMPAZINE [Concomitant]
     Active Substance: PROCHLORPERAZINE MALEATE
  3. VALACYCLOVIR HCL [Concomitant]
     Active Substance: VALACYCLOVIR HYDROCHLORIDE
  4. DIPHENOXYLATE [Concomitant]
     Active Substance: DIPHENOXYLATE
  5. TIZANIDINE HCL [Concomitant]
     Active Substance: TIZANIDINE HYDROCHLORIDE
  6. ZOFRAN [Concomitant]
     Active Substance: ONDANSETRON HYDROCHLORIDE
  7. SILDENAFIL. [Suspect]
     Active Substance: SILDENAFIL
     Indication: PRODUCT USED FOR UNKNOWN INDICATION
     Route: 048
  8. GABAPENTIN. [Concomitant]
     Active Substance: GABAPENTIN
  9. LASIX [Concomitant]
     Active Substance: FUROSEMIDE
  10. POTASSIUM [Concomitant]
     Active Substance: POTASSIUM
  11. LUNESTA [Concomitant]
     Active Substance: ESZOPICLONE
  12. LEVOTHYROXINE SODIUM. [Concomitant]
     Active Substance: LEVOTHYROXINE SODIUM
  13. LORAZEPAM. [Concomitant]
     Active Substance: LORAZEPAM
  14. FLUCONAZOLE. [Concomitant]
     Active Substance: FLUCONAZOLE
  15. PROCHLORPERAZINE MALEATE. [Concomitant]
     Active Substance: PROCHLORPERAZINE MALEATE

REACTIONS (1)
  - Hospitalisation [None]
